FAERS Safety Report 5393569-4 (Version None)
Quarter: 2007Q3

REPORT INFORMATION
  Report Type: 
  Country: None (occurrence: None)
  Receive Date: 20070723
  Receipt Date: 20060830
  Transmission Date: 20080115
  Serious: Yes (Other)
  Sender: FDA-Public Use
  Company Number: A0618624A

PATIENT
  Sex: Male

DRUGS (3)
  1. AVANDIA [Suspect]
     Route: 048
  2. INSULIN [Concomitant]
  3. METFORMIN HCL [Concomitant]

REACTIONS (1)
  - MACULAR OEDEMA [None]
